FAERS Safety Report 4657783-5 (Version None)
Quarter: 2005Q2

REPORT INFORMATION
  Report Type: 
  Country: None (occurrence: None)
  Receive Date: 20050510
  Receipt Date: 20050503
  Transmission Date: 20051028
  Serious: Yes (Hospitalization)
  Sender: FDA-Public Use
  Company Number: US-BRISTOL-MYERS SQUIBB COMPANY-12956272

PATIENT
  Age: 69 Year
  Sex: Male
  Weight: 93 kg

DRUGS (4)
  1. CETUXIMAB [Suspect]
     Indication: NON-SMALL CELL LUNG CANCER
     Dosage: 7205.5 MG ADMINISTERED THIS COURSE.
     Route: 042
     Dates: start: 20050314, end: 20050314
  2. CARBOPLATIN [Suspect]
     Indication: NON-SMALL CELL LUNG CANCER
     Dosage: 1756 MG ADMINISTERED THIS COURSE.
     Route: 042
     Dates: start: 20050228, end: 20050228
  3. PACLITAXEL [Suspect]
     Indication: NON-SMALL CELL LUNG CANCER
     Dosage: 1089 MG ADMINISTERED THIS COURSE.
     Route: 042
     Dates: start: 20050228, end: 20050228
  4. RADIATION THERAPY [Suspect]
     Indication: NON-SMALL CELL LUNG CANCER
     Dosage: EXTERNAL BEAM RADIATION THERAPY 63 GY ADMINISTERED, 35 FRACTIONS.  NUMBER OF DAYS ELAPSED 53.
     Dates: start: 20050203, end: 20050203

REACTIONS (8)
  - HYPOMAGNESAEMIA [None]
  - HYPOTENSION [None]
  - PNEUMONIA [None]
  - SEPSIS [None]
  - SPUTUM CULTURE POSITIVE [None]
  - STREPTOCOCCAL INFECTION [None]
  - UPPER RESPIRATORY TRACT INFECTION [None]
  - VENTRICULAR TACHYCARDIA [None]
